FAERS Safety Report 5240477-5 (Version None)
Quarter: 2007Q1

REPORT INFORMATION
  Report Type: 
  Country: None (occurrence: None)
  Receive Date: 20070219
  Receipt Date: 20070213
  Transmission Date: 20070707
  Serious: Yes (Hospitalization)
  Sender: FDA-Public Use
  Company Number: US-GLAXOSMITHKLINE-A0639517A

PATIENT
  Age: 40 Year
  Sex: Female

DRUGS (3)
  1. PAXIL [Suspect]
     Indication: SCHIZOPHRENIA
     Dosage: 30MG PER DAY
     Route: 048
  2. ZYPREXA [Suspect]
     Indication: SCHIZOPHRENIA
     Dosage: 10MG PER DAY
     Route: 048
  3. LOXAPINE [Concomitant]

REACTIONS (6)
  - AGITATION [None]
  - DYSKINESIA [None]
  - INCOHERENT [None]
  - INTENTIONAL OVERDOSE [None]
  - MULTIPLE DRUG OVERDOSE INTENTIONAL [None]
  - MYOCLONUS [None]
